FAERS Safety Report 8818741 (Version 1)
Quarter: 2012Q4

REPORT INFORMATION
  Report Type: 
  Country: US (occurrence: US)
  Receive Date: 20121001
  Receipt Date: 20121001
  Transmission Date: 20130627
  Serious: Yes (Death)
  Sender: FDA-Public Use
  Company Number: US-ROCHE-1129516

PATIENT
  Sex: Female

DRUGS (8)
  1. HERCEPTIN [Suspect]
     Indication: BREAST CANCER FEMALE
     Dosage: Loading dose
     Route: 065
     Dates: start: 19990501
  2. HERCEPTIN [Suspect]
     Indication: HAEMATOLOGICAL MALIGNANCY
     Dosage: Maintenance dose
     Route: 065
  3. XELODA [Concomitant]
  4. TAMOXIFEN [Concomitant]
     Route: 065
  5. ZOLADEX [Concomitant]
     Route: 065
  6. AREDIA [Concomitant]
     Route: 065
  7. ALDACTONE [Concomitant]
  8. LASIX [Concomitant]

REACTIONS (4)
  - Death [Fatal]
  - Palmar erythema [Unknown]
  - Plantar erythema [Unknown]
  - Ascites [Unknown]
